FAERS Safety Report 11593101 (Version 4)
Quarter: 2015Q4

REPORT INFORMATION
  Report Type: Report from Study
  Country: MX (occurrence: MX)
  Receive Date: 20151005
  Receipt Date: 20151120
  Transmission Date: 20160304
  Serious: Yes (Other)
  Sender: FDA-Public Use
  Company Number: PHHY2015MX119017

PATIENT
  Sex: Female
  Weight: 66 kg

DRUGS (3)
  1. GILENYA [Suspect]
     Active Substance: FINGOLIMOD HYDROCHLORIDE
     Indication: MULTIPLE SCLEROSIS
     Dosage: 0.5 MG, QD
     Route: 048
  2. DICLOFENAC [Concomitant]
     Active Substance: DICLOFENAC
     Indication: HEADACHE
     Dosage: 2 DF, EVERY THIRD DAY
     Route: 065
  3. DOLO-NEUROBION (DICLOFENAC SODIUM/VIT B1 HCL/VIT B6 HCL/VIT B12) [Concomitant]
     Indication: HEADACHE
     Route: 065

REACTIONS (3)
  - Abdominal discomfort [Unknown]
  - Gastric haemorrhage [Recovering/Resolving]
  - Headache [Not Recovered/Not Resolved]
